FAERS Safety Report 23472926 (Version 1)
Quarter: 2024Q1

REPORT INFORMATION
  Report Type: Spontaneous
  Country: JP (occurrence: JP)
  Receive Date: 20240203
  Receipt Date: 20240203
  Transmission Date: 20240409
  Serious: Yes (Hospitalization)
  Sender: FDA-Public Use
  Company Number: JP-TEVA-VS-3148010

PATIENT
  Age: 79 Year
  Sex: Female

DRUGS (1)
  1. CERCINE [Suspect]
     Active Substance: DIAZEPAM
     Indication: Product used for unknown indication
     Dosage: DOSAGE IS UNKNOWN
     Route: 048

REACTIONS (4)
  - Fracture [Unknown]
  - Product colour issue [Unknown]
  - Product dose omission in error [Unknown]
  - Fall [Unknown]

NARRATIVE: CASE EVENT DATE: 20231218
